FAERS Safety Report 6174634-0 (Version None)
Quarter: 2009Q2

REPORT INFORMATION
  Report Type: 
  Country: None (occurrence: None)
  Receive Date: 20090430
  Receipt Date: 20090428
  Transmission Date: 20091009
  Serious: Yes (Life-Threatening, Hospitalization)
  Sender: FDA-Public Use
  Company Number: SE-SANOFI-SYNTHELABO-F01200900412

PATIENT

DRUGS (3)
  1. BEVACIZUMAB [Suspect]
     Dosage: UNK
     Route: 065
  2. CAPECITABINE [Suspect]
     Dosage: UNK
     Route: 065
  3. OXALIPLATIN [Suspect]
     Indication: COLORECTAL CANCER METASTATIC
     Dosage: UNK
     Route: 042

REACTIONS (1)
  - GASTROINTESTINAL PERFORATION [None]
